FAERS Safety Report 9084059 (Version 3)
Quarter: 2013Q1

REPORT INFORMATION
  Report Type: Spontaneous
  Country: GB (occurrence: GB)
  Receive Date: 20130218
  Receipt Date: 20130304
  Transmission Date: 20140127
  Serious: Yes (Life-Threatening, Hospitalization, Other)
  Sender: FDA-Public Use
  Company Number: PHFR2013GB001134

PATIENT
  Age: 48 None
  Sex: Male

DRUGS (5)
  1. CLOZARIL [Suspect]
     Indication: SCHIZOPHRENIA
     Dosage: 650 MG, DAILY IN THE NIGHT
     Route: 048
     Dates: start: 20010701, end: 20130214
  2. HYOSCINE [Concomitant]
     Dosage: UNK
  3. NOREPINEPHRINE [Concomitant]
     Dosage: UNK
  4. HYOSCINE HYDROBROMIDE [Concomitant]
     Indication: SALIVARY HYPERSECRETION
     Dosage: 300 UG, DAILY
     Route: 048
  5. VALPROATE SEMISODIUM [Concomitant]
     Indication: MANIA
     Dosage: 1500 MG, (500MG IN THE MORNING, 1000MG IN THE NIGHT)
     Route: 048

REACTIONS (8)
  - Coma [Recovering/Resolving]
  - Intestinal obstruction [Recovering/Resolving]
  - Salivary hypersecretion [Recovering/Resolving]
  - Antipsychotic drug level increased [Recovering/Resolving]
  - Faecaloma [Unknown]
  - Toxicity to various agents [Unknown]
  - Pneumonia aspiration [Unknown]
  - Constipation [Unknown]
